FAERS Safety Report 6719263-2 (Version None)
Quarter: 2010Q2

REPORT INFORMATION
  Report Type: 
  Country: None (occurrence: None)
  Receive Date: 20100507
  Receipt Date: 20100425
  Transmission Date: 20101027
  Serious: Yes (Hospitalization)
  Sender: FDA-Public Use
  Company Number: KV200801115

PATIENT
  Age: 40 Year
  Sex: Female
  Weight: 127 kg

DRUGS (62)
  1. MORPHINE SULFATE IR (MORPHINE SULFATE) IMMEDIATE RELEASE TABLET, 15MG [Suspect]
     Indication: PAIN
     Dosage: 15 MG, QID, ORAL
     Route: 048
     Dates: start: 20081201
  2. MORPHINE SULFATE IR (MORPHINE SULFATE) IMMEDIATE RELEASE TABLET, 30MG [Suspect]
     Indication: PAIN
     Dosage: 30 MG, TID, ORAL
     Route: 048
     Dates: start: 20050117
  3. KADIAN [Concomitant]
  4. NEXIUM [Concomitant]
  5. OXYCODONE WITH APAP (OXYCODONE HYDROCHLORIDE, PARACETAMOL) [Concomitant]
  6. HYDROCODONE W/APAP (HYDROCODONE, PARACETAMOL) [Concomitant]
  7. REQUIP [Concomitant]
  8. AMBIEN (ZOLPIDEM TRATRATE) [Concomitant]
  9. XANAX [Concomitant]
  10. TOPAMAX [Concomitant]
  11. CYMBALTA [Concomitant]
  12. CYMBALTA [Concomitant]
  13. BACLOFEN [Concomitant]
  14. LODINE [Concomitant]
  15. MVI (VITAMINS NOS) [Concomitant]
  16. CALCIUM (CALCIUM) [Concomitant]
  17. SENOKOT /00142201/ (SENNA ALEXANDRIA) [Concomitant]
  18. CEPHALEXIN /00145501/ (CEFALEXIN) [Concomitant]
  19. CEFAZOLIN [Concomitant]
  20. FIORICET [Concomitant]
  21. HYOSCYAMINE (HYOSCYAMINE) [Concomitant]
  22. DILAUDID [Concomitant]
  23. ACTIGALL [Concomitant]
  24. MELATONIN (MELATONIN) [Concomitant]
  25. FLECERIL /00428402/ (CYCLOBENZAPRINE HYDROCHLORIDE) [Concomitant]
  26. ULTRAM [Concomitant]
  27. ZANAFLEX [Concomitant]
  28. NEURONTIN [Concomitant]
  29. METHYLPREDISOLONE (METHYLPREDNISOLONE) [Concomitant]
  30. PHENERGAN /00033001/ (PROMETHAZINE) [Concomitant]
  31. MIRALAZ (MACROGOL) [Concomitant]
  32. CELEBREX [Concomitant]
  33. ROBAXIN /00047901/ (METHOCARBAMOL) [Concomitant]
  34. DIPHENHYDRAMINE HCL [Concomitant]
  35. FENTANYL (FANTANYL) [Concomitant]
  36. QUININE (QUININE) [Concomitant]
  37. MORTIN (IBUPROFEN) [Concomitant]
  38. TYLENOL /00020001/ (PARACETAMOL) [Concomitant]
  39. POTASSIUM CHLORIDE [Concomitant]
  40. LOPRESSOR [Concomitant]
  41. ASPIRIN [Concomitant]
  42. DIAZEPAM [Concomitant]
  43. PROTONIX /0163201/ (PANTOPRAZOLE) [Concomitant]
  44. ZOFRAN /00955301/ (ONDANSETRON) [Concomitant]
  45. DULCOLAX /00064401/ (BISACODYL) [Concomitant]
  46. ALBUTEROL /00139501/ (SALBUTAMOL) [Concomitant]
  47. TYLENOL /00020001/ (PARACETAMOL) [Concomitant]
  48. MYLANTA /00036701/ (ALUMINIUM HYDROXIDE GEL, DRIED, MAGNESIUM HYDROXID [Concomitant]
  49. LIDODERM [Concomitant]
  50. KEFLEX /00145501/ (CEFALEXIN) [Concomitant]
  51. ZOSYN [Concomitant]
  52. MORPHINE [Concomitant]
  53. CLONAZEPAM [Concomitant]
  54. PEPCID /00706001/ (FAMOTIDINE) [Concomitant]
  55. VARENICLINE (VARENICLINE) [Concomitant]
  56. FROVA (FROVATRIPTAN SUCCINARE MONOHYDRATE) [Concomitant]
  57. REGLAN /00041901/ (METOCLOPRAMIDE) [Concomitant]
  58. AVELOX /01453201/ (MOXIFLOXACIN) [Concomitant]
  59. DONNATAL [Concomitant]
  60. SPIRICA (TIOTROPIUM BROMIDE) [Concomitant]
  61. IMITREX /01044801/ (SUMATRIPTAN) [Concomitant]
  62. VOLTAREN /00372301/ (DICLOFENAC) [Concomitant]

REACTIONS (70)
  - ABDOMINAL PAIN [None]
  - ABDOMINAL PAIN UPPER [None]
  - ADRENAL MASS [None]
  - AMNESIA [None]
  - ANXIETY [None]
  - ARTHRALGIA [None]
  - BACK PAIN [None]
  - BALANCE DISORDER [None]
  - BREAST ABSCESS [None]
  - BREAST CELLULITIS [None]
  - BURNING SENSATION [None]
  - CHEST PAIN [None]
  - CHRONIC OBSTRUCTIVE PULMONARY DISEASE [None]
  - COLONIC POLYP [None]
  - CONSTIPATION [None]
  - DECREASED APPETITE [None]
  - DEPRESSION [None]
  - DIARRHOEA [None]
  - DIARRHOEA HAEMORRHAGIC [None]
  - DIVERTICULUM [None]
  - DIZZINESS [None]
  - DRUG INEFFECTIVE [None]
  - DRUG WITHDRAWAL SYNDROME [None]
  - DUODENOGASTRIC REFLUX [None]
  - DYSPHAGIA [None]
  - EMOTIONAL DISTRESS [None]
  - ENDOMETRIOSIS [None]
  - FAECAL INCONTINENCE [None]
  - FALL [None]
  - FATIGUE [None]
  - FLATULENCE [None]
  - GALACTORRHOEA [None]
  - GENERALISED OEDEMA [None]
  - HAEMORRHOIDS [None]
  - HEADACHE [None]
  - HEART RATE INCREASED [None]
  - HYPERTENSION [None]
  - HYPOAESTHESIA [None]
  - INTERNAL HERNIA [None]
  - INTERVERTEBRAL DISC DEGENERATION [None]
  - INTERVERTEBRAL DISC PROTRUSION [None]
  - JOINT SPRAIN [None]
  - MALABSORPTION [None]
  - MALNUTRITION [None]
  - MOBILITY DECREASED [None]
  - MUSCULAR WEAKNESS [None]
  - MUSCULOSKELETAL PAIN [None]
  - NAUSEA [None]
  - NECK PAIN [None]
  - NEURITIS [None]
  - OEDEMA PERIPHERAL [None]
  - ORTHOPNOEA [None]
  - PAIN [None]
  - PAIN IN EXTREMITY [None]
  - PANIC ATTACK [None]
  - PARAESTHESIA [None]
  - PARALYSIS [None]
  - PATELLOFEMORAL PAIN SYNDROME [None]
  - POLYDIPSIA [None]
  - POLYURIA [None]
  - PRODUCT QUALITY ISSUE [None]
  - PSYCHOMOTOR SKILLS IMPAIRED [None]
  - RESTLESS LEGS SYNDROME [None]
  - SMALL INTESTINAL OBSTRUCTION [None]
  - SPHINCTER OF ODDI DYSFUNCTION [None]
  - SPINAL COLUMN STENOSIS [None]
  - STRESS URINARY INCONTINENCE [None]
  - TEMPERATURE INTOLERANCE [None]
  - THYROID NEOPLASM [None]
  - WEIGHT INCREASED [None]
